FAERS Safety Report 25221100 (Version 1)
Quarter: 2025Q2

REPORT INFORMATION
  Report Type: Spontaneous
  Country: US (occurrence: US)
  Receive Date: 20250421
  Receipt Date: 20250421
  Transmission Date: 20250717
  Serious: Yes (Other)
  Sender: BAYER HEALTHCARE LLC
  Company Number: US-BAYER-2025A053235

PATIENT

DRUGS (2)
  1. TINACTIN [Suspect]
     Active Substance: TOLNAFTATE
  2. MICONAZOLE NITRATE [Suspect]
     Active Substance: MICONAZOLE NITRATE

REACTIONS (5)
  - Mesothelioma malignant [None]
  - Pain [None]
  - Anxiety [None]
  - Anhedonia [None]
  - Product contamination [None]
